FAERS Safety Report 25573527 (Version 1)
Quarter: 2025Q3

REPORT INFORMATION
  Report Type: Spontaneous
  Country: US (occurrence: None)
  Receive Date: 20250716
  Receipt Date: 20250716
  Transmission Date: 20251020
  Serious: Yes (Other)
  Sender: FDA-CTU
  Company Number: None

PATIENT
  Age: 24 Year
  Sex: Female
  Weight: 66.6 kg

DRUGS (5)
  1. MICONAZOLE 1 [Suspect]
     Active Substance: MICONAZOLE NITRATE
     Indication: Fungal infection
     Dosage: OTHER QUANTITY : 1 SUPPOSITORY(IES);?FREQUENCY : DAILY;?
     Route: 067
     Dates: start: 20250715, end: 20250716
  2. GLUTAMINE [Concomitant]
     Active Substance: GLUTAMINE
  3. VITAMINS [Concomitant]
     Active Substance: VITAMINS
  4. vitamin A B C E [Concomitant]
  5. NAC [Concomitant]

REACTIONS (3)
  - Product communication issue [None]
  - Vulvovaginal pruritus [None]
  - Vulvovaginal burning sensation [None]

NARRATIVE: CASE EVENT DATE: 20250716
